FAERS Safety Report 8570318-X (Version None)
Quarter: 2012Q3

REPORT INFORMATION
  Report Type: 
  Country: None (occurrence: None)
  Receive Date: 20120803
  Receipt Date: 20120723
  Transmission Date: 20120928
  Serious: Yes (Hospitalization)
  Sender: FDA-Public Use
  Company Number: NL-MEDIMMUNE-MEDI-0015475

PATIENT
  Age: 8 Month
  Sex: Male
  Weight: 7.8 kg

DRUGS (8)
  1. SYNAGIS [Suspect]
     Route: 030
     Dates: start: 20120417, end: 20120417
  2. NITRAZEPAM [Concomitant]
  3. RANITIDINE HYDROCHLORIDE [Concomitant]
  4. DOMPERIDONE [Concomitant]
  5. SYNAGIS [Suspect]
     Route: 030
     Dates: start: 20120326, end: 20120326
  6. VIGABATRIN [Concomitant]
  7. POLYETHYLENE GLYCOL [Concomitant]
  8. SYNAGIS [Suspect]
     Indication: HEART DISEASE CONGENITAL
     Route: 030
     Dates: start: 20111125, end: 20111125

REACTIONS (4)
  - URINARY TRACT INFECTION [None]
  - ABDOMINAL PAIN [None]
  - KIDNEY INFECTION [None]
  - FEELING ABNORMAL [None]
